FAERS Safety Report 12482412 (Version 2)
Quarter: 2016Q3

REPORT INFORMATION
  Report Type: Report from Study
  Country: DE (occurrence: DE)
  Receive Date: 20160620
  Receipt Date: 20160707
  Transmission Date: 20161109
  Serious: Yes (Life-Threatening, Hospitalization, Other)
  Sender: FDA-Public Use
  Company Number: DE-009507513-1606DEU007923

PATIENT
  Age: 57 Year
  Sex: Male
  Weight: 84 kg

DRUGS (12)
  1. TRETINOIN. [Suspect]
     Active Substance: TRETINOIN
     Dosage: 30.6 MG, QD
     Dates: start: 20160503, end: 20160512
  2. ZIENAM 500 [Suspect]
     Active Substance: CILASTATIN SODIUM\IMIPENEM
     Indication: PYREXIA
     Dosage: 500 MG, TID
     Route: 042
     Dates: start: 20160506, end: 20160510
  3. IDARUBICIN HYDROCHLORIDE. [Suspect]
     Active Substance: IDARUBICIN HYDROCHLORIDE
     Dosage: 24.48 MG, QD
     Dates: start: 20160427, end: 20160501
  4. STRUCTOKABIVEN [Suspect]
     Active Substance: AMINO ACIDS\DEXTROSE\ELECTROLYTES NOS
     Indication: MALNUTRITION
     Dosage: 1300 KCAL DAILY
     Route: 042
     Dates: start: 20160506, end: 20160513
  5. MIRTAZAPINE. [Concomitant]
     Active Substance: MIRTAZAPINE
     Indication: DEPRESSION
     Dosage: UNK
     Route: 048
     Dates: start: 20160503, end: 20160514
  6. NOXAFIL [Suspect]
     Active Substance: POSACONAZOLE
     Indication: ANTIFUNGAL PROPHYLAXIS
     Dosage: 5 ML, TID
     Route: 048
     Dates: start: 20160422, end: 20160501
  7. CYTARABINE. [Suspect]
     Active Substance: CYTARABINE
     Dosage: 204 MG, QD
     Dates: start: 20160427, end: 20160505
  8. ETOPOSIDE. [Suspect]
     Active Substance: ETOPOSIDE
     Dosage: 204 MG, QD
     Dates: start: 20160427, end: 20160429
  9. GEMTUZUMAB OZOGAMICIN [Suspect]
     Active Substance: GEMTUZUMAB OZOGAMICIN
     Indication: ACUTE MYELOID LEUKAEMIA
     Dosage: 6.12 MG, QD
     Dates: start: 20160428, end: 20160428
  10. VANCOMYCIN HYDROCHLORIDE. [Suspect]
     Active Substance: VANCOMYCIN HYDROCHLORIDE
     Dosage: 1 G, QD
     Route: 042
     Dates: start: 20160514, end: 20160516
  11. NOXAFIL [Suspect]
     Active Substance: POSACONAZOLE
     Dosage: 5 ML, TID
     Route: 048
     Dates: start: 20160504, end: 20160516
  12. VANCOMYCIN HYDROCHLORIDE. [Suspect]
     Active Substance: VANCOMYCIN HYDROCHLORIDE
     Indication: STAPHYLOCOCCAL INFECTION
     Dosage: 1 G, QD
     Route: 042
     Dates: start: 20160508, end: 20160512

REACTIONS (2)
  - Hyperbilirubinaemia [Unknown]
  - Dermatitis exfoliative [Not Recovered/Not Resolved]

NARRATIVE: CASE EVENT DATE: 20160508
